FAERS Safety Report 8280371-9 (Version None)
Quarter: 2012Q2

REPORT INFORMATION
  Report Type: 
  Country: None (occurrence: None)
  Receive Date: 20120412
  Receipt Date: 20110801
  Transmission Date: 20120825
  Serious: No
  Sender: FDA-Public Use
  Company Number: US-ASTRAZENECA-2011SE45917

PATIENT
  Age: 66 Year
  Sex: Male

DRUGS (1)
  1. NEXIUM [Suspect]
     Indication: GASTROOESOPHAGEAL REFLUX DISEASE
     Route: 048
     Dates: start: 20010101

REACTIONS (6)
  - ARTHRITIS [None]
  - NEUROPATHY PERIPHERAL [None]
  - ARTERIAL DISORDER [None]
  - INTERVERTEBRAL DISC PROTRUSION [None]
  - TOOTH FRACTURE [None]
  - PAIN [None]
